FAERS Safety Report 8216370-2 (Version None)
Quarter: 2012Q1

REPORT INFORMATION
  Report Type: 
  Country: None (occurrence: None)
  Receive Date: 20120316
  Receipt Date: 20120313
  Transmission Date: 20120608
  Serious: Yes (Other)
  Sender: FDA-Public Use
  Company Number: PHHY2011ZA111021

PATIENT
  Sex: Male

DRUGS (2)
  1. GLEEVEC [Suspect]
     Indication: CHRONIC MYELOID LEUKAEMIA
     Dosage: 400 MG, UNK
     Route: 065
  2. GLEEVEC [Suspect]
     Dosage: 600 MG
     Route: 065

REACTIONS (5)
  - NEOPLASM MALIGNANT [None]
  - NO THERAPEUTIC RESPONSE [None]
  - CHRONIC MYELOID LEUKAEMIA [None]
  - CYTOGENETIC ABNORMALITY [None]
  - CHLOROMA [None]
